FAERS Safety Report 11919139 (Version 1)
Quarter: 2016Q1

REPORT INFORMATION
  Report Type: Spontaneous
  Country: US (occurrence: None)
  Receive Date: 20160114
  Receipt Date: 20160114
  Transmission Date: 20160526
  Serious: Yes (Other)
  Sender: FDA-Public Use
  Company Number: None

PATIENT
  Age: 52 Year
  Sex: Male

DRUGS (1)
  1. HCG 100000 WELLS PHARMACY [Suspect]
     Active Substance: GONADOTROPHIN, CHORIONIC
     Indication: PRODUCT USED FOR UNKNOWN INDICATION
     Route: 058
     Dates: start: 20150104, end: 20160111

REACTIONS (3)
  - Injection site pain [None]
  - Injection site erythema [None]
  - Product quality issue [None]

NARRATIVE: CASE EVENT DATE: 20160112
